FAERS Safety Report 11489275 (Version 1)
Quarter: 2015Q3

REPORT INFORMATION
  Report Type: Report from Study
  Country: VE (occurrence: VE)
  Receive Date: 20150909
  Receipt Date: 20150909
  Transmission Date: 20151125
  Serious: Yes (Other)
  Sender: FDA-Public Use
  Company Number: PHHY2015VE092441

PATIENT
  Age: 44 Year
  Sex: Female

DRUGS (5)
  1. XOLAIR [Suspect]
     Active Substance: OMALIZUMAB
     Indication: BLOOD IMMUNOGLOBULIN E ABNORMAL
  2. AIRON [Concomitant]
     Indication: ASTHMATIC CRISIS
     Dosage: 10 MG, QHS (DAILY, AT NIGHTS FOR THREE MONTHS)
     Route: 065
     Dates: start: 20150727
  3. XOLAIR [Suspect]
     Active Substance: OMALIZUMAB
     Indication: ASTHMATIC CRISIS
     Dosage: 300 MG, EVERY 20 DAYS
     Route: 030
  4. FORADIL [Suspect]
     Active Substance: FORMOTEROL FUMARATE
     Indication: ASTHMATIC CRISIS
     Dosage: UNK, BID
     Route: 065
  5. MIFLONIDE [Suspect]
     Active Substance: BUDESONIDE
     Indication: ASTHMATIC CRISIS
     Dosage: UNK, BID
     Route: 065

REACTIONS (3)
  - Condition aggravated [Recovering/Resolving]
  - Asthmatic crisis [Recovering/Resolving]
  - Incorrect route of drug administration [Unknown]

NARRATIVE: CASE EVENT DATE: 201412
